FAERS Safety Report 5672970-5 (Version None)
Quarter: 2008Q1

REPORT INFORMATION
  Report Type: 
  Country: None (occurrence: None)
  Receive Date: 20080319
  Receipt Date: 20071129
  Transmission Date: 20080703
  Serious: No
  Sender: FDA-Public Use
  Company Number: US-ASTRAZENECA-2007UW27377

PATIENT
  Sex: Female

DRUGS (2)
  1. SYMBICORT [Suspect]
     Dosage: 160/4.5 UG 2 INHALATIONS BID
     Route: 055
  2. AVELOX [Suspect]

REACTIONS (2)
  - GLOSSITIS [None]
  - THROAT IRRITATION [None]
